FAERS Safety Report 26021549 (Version 1)
Quarter: 2025Q4

REPORT INFORMATION
  Report Type: Spontaneous
  Country: KR (occurrence: KR)
  Receive Date: 20251110
  Receipt Date: 20251110
  Transmission Date: 20260118
  Serious: Yes (Other)
  Sender: PFIZER
  Company Number: KR-PFIZER INC-PV202500130125

PATIENT
  Age: 85 Year
  Sex: Female

DRUGS (8)
  1. ALDACTONE [Suspect]
     Active Substance: SPIRONOLACTONE
     Indication: Cardiac failure congestive
     Dosage: 0.5 DF, 1X/DAY
     Dates: start: 20250109, end: 20250204
  2. APIXABAN [Suspect]
     Active Substance: APIXABAN
     Indication: Cardiac failure congestive
     Dosage: 1 DF, 2X/DAY
     Dates: start: 20250109, end: 20250204
  3. FUROSEMIDE [Suspect]
     Active Substance: FUROSEMIDE
     Indication: Cardiac failure congestive
     Dosage: 0.5 DF, 1X/DAY
     Dates: start: 20250109, end: 20250204
  4. BISOPROLOL FUMARATE [Suspect]
     Active Substance: BISOPROLOL FUMARATE
     Indication: Cardiac failure congestive
     Dosage: 1 DF, 1X/DAY
     Dates: start: 20250109, end: 20250204
  5. FERROUS SULFATE [Suspect]
     Active Substance: FERROUS SULFATE
     Indication: Cardiac failure congestive
     Dosage: 1 DF, 2X/DAY
     Dates: start: 20250109, end: 20250204
  6. DAPAGLIFLOZIN PROPANEDIOL [Suspect]
     Active Substance: DAPAGLIFLOZIN PROPANEDIOL
     Indication: Cardiac failure congestive
     Dosage: 1 DF, 1X/DAY
     Dates: start: 20250109, end: 20250204
  7. METHYLCOBALAMIN [Suspect]
     Active Substance: METHYLCOBALAMIN
     Indication: Cardiac failure congestive
     Dosage: 1 DF, 2X/DAY
     Dates: start: 20250109, end: 20250204
  8. LOSARTAN POTASSIUM [Suspect]
     Active Substance: LOSARTAN POTASSIUM
     Indication: Cardiac failure congestive
     Dosage: 0.5 DF, 1X/DAY
     Dates: start: 20250109, end: 20250204

REACTIONS (1)
  - Melaena [Recovered/Resolved]

NARRATIVE: CASE EVENT DATE: 20250109
